FAERS Safety Report 5627570-X (Version None)
Quarter: 2008Q1

REPORT INFORMATION
  Report Type: 
  Country: None (occurrence: None)
  Receive Date: 20080215
  Receipt Date: 20080110
  Transmission Date: 20080703
  Serious: No
  Sender: FDA-Public Use
  Company Number: A0702452A

PATIENT
  Age: 68 Year
  Sex: Male

DRUGS (2)
  1. COREG CR [Suspect]
     Dosage: 40MG PER DAY
     Route: 048
     Dates: start: 20071227, end: 20080107
  2. NO CONCURRENT MEDICATION [Concomitant]

REACTIONS (1)
  - SOMNOLENCE [None]
